FAERS Safety Report 6934101-0 (Version None)
Quarter: 2010Q3

REPORT INFORMATION
  Report Type: 
  Country: None (occurrence: None)
  Receive Date: 20100820
  Receipt Date: 20100816
  Transmission Date: 20110219
  Serious: Yes (Hospitalization)
  Sender: FDA-Public Use
  Company Number: FR-MERCK-1008FRA00050

PATIENT
  Age: 68 Year
  Sex: Male

DRUGS (6)
  1. HYZAAR [Suspect]
     Route: 048
     Dates: start: 20100210, end: 20100318
  2. ALISKIREN FUMARATE AND HYDROCHLOROTHIAZIDE [Suspect]
     Route: 048
     Dates: start: 20100318, end: 20100527
  3. TROSPIUM CHLORIDE [Concomitant]
     Route: 065
  4. TRIMETAZIDINE HYDROCHLORIDE [Concomitant]
     Route: 065
  5. ZOLPIDEM TARTRATE [Concomitant]
     Route: 065
  6. OMEPRAZOLE [Concomitant]
     Route: 065

REACTIONS (2)
  - CONDITION AGGRAVATED [None]
  - COUGH [None]
